FAERS Safety Report 6971767-3 (Version None)
Quarter: 2010Q3

REPORT INFORMATION
  Report Type: 
  Country: None (occurrence: None)
  Receive Date: 20100903
  Receipt Date: 20100817
  Transmission Date: 20110219
  Serious: Yes (Hospitalization, Other)
  Sender: FDA-Public Use
  Company Number: 2009AP002557

PATIENT
  Age: 24 Year
  Sex: Female

DRUGS (4)
  1. CARBAMAZEPINE [Suspect]
     Indication: EPILEPSY
     Dosage: 2100 MG;QD ; 600 MG;BID
  2. VALPROIC ACID [Concomitant]
  3. CLOBAZAM (CLOBAZAM) [Concomitant]
  4. PHENYTOIN [Concomitant]

REACTIONS (9)
  - ATAXIA [None]
  - BALANCE DISORDER [None]
  - DEPRESSED LEVEL OF CONSCIOUSNESS [None]
  - HEADACHE [None]
  - HEMIPARESIS [None]
  - HYPOREFLEXIA [None]
  - NAUSEA [None]
  - OCULOGYRIC CRISIS [None]
  - VOMITING [None]
